FAERS Safety Report 17435754 (Version 2)
Quarter: 2020Q1

REPORT INFORMATION
  Report Type: Spontaneous
  Country: GB (occurrence: GB)
  Receive Date: 20200219
  Receipt Date: 20200324
  Transmission Date: 20200409
  Serious: Yes (Disabling, Other)
  Sender: FDA-Public Use
  Company Number: GB-MYLANLABS-2020M1017868

PATIENT
  Age: 52 Year
  Sex: Female
  Weight: 44.45 kg

DRUGS (3)
  1. PREGABALIN. [Suspect]
     Active Substance: PREGABALIN
     Indication: ANALGESIC THERAPY
     Dosage: 1800 FOR 12 YEARS... THEN UP TO 3600...NOW TAPERING DOWN TO 900
     Route: 048
     Dates: start: 19990601
  2. TRAMADOL. [Concomitant]
     Active Substance: TRAMADOL
  3. GABAPENTIN. [Suspect]
     Active Substance: GABAPENTIN
     Indication: ANALGESIC THERAPY
     Dosage: 1800 FOR 12 YEARS... THEN UP TO 3600...NOW TAPERING DOWN TO 900
     Route: 048
     Dates: start: 19990601

REACTIONS (12)
  - Withdrawal syndrome [Unknown]
  - Anxiety [Unknown]
  - Intrusive thoughts [Unknown]
  - Abnormal loss of weight [Unknown]
  - Depression [Unknown]
  - Nightmare [Unknown]
  - Insomnia [Unknown]
  - Decreased appetite [Unknown]
  - Nausea [Unknown]
  - Myalgia [Not Recovered/Not Resolved]
  - Pain [Not Recovered/Not Resolved]
  - Heart rate irregular [Unknown]

NARRATIVE: CASE EVENT DATE: 20171101
